FAERS Safety Report 8309417-6 (Version None)
Quarter: 2012Q2

REPORT INFORMATION
  Report Type: 
  Country: None (occurrence: None)
  Receive Date: 20120424
  Receipt Date: 20120424
  Transmission Date: 20120825
  Serious: No
  Sender: FDA-Public Use
  Company Number: None

PATIENT
  Age: 28 Year
  Sex: Female

DRUGS (1)
  1. SOLODYN [Suspect]
     Indication: ACNE
     Dosage: 65MG ONCE DAILY PO
     Route: 048
     Dates: start: 20120314, end: 20120416

REACTIONS (2)
  - ARTHRALGIA [None]
  - RASH [None]
